FAERS Safety Report 23409624 (Version 3)
Quarter: 2024Q1

REPORT INFORMATION
  Report Type: Spontaneous
  Country: US (occurrence: US)
  Receive Date: 20240117
  Receipt Date: 20240201
  Transmission Date: 20240410
  Serious: No
  Sender: FDA-Public Use
  Company Number: US-BIOGEN-2024BI01245123

PATIENT
  Sex: Female

DRUGS (4)
  1. TYSABRI [Suspect]
     Active Substance: NATALIZUMAB
     Indication: Multiple sclerosis
     Route: 050
     Dates: start: 20220617
  2. TYSABRI [Suspect]
     Active Substance: NATALIZUMAB
     Route: 050
     Dates: start: 20150306, end: 20160606
  3. TYSABRI [Suspect]
     Active Substance: NATALIZUMAB
     Route: 050
     Dates: start: 20161209, end: 20170807
  4. TYSABRI [Suspect]
     Active Substance: NATALIZUMAB
     Route: 050
     Dates: start: 20170922, end: 20220428

REACTIONS (5)
  - Product dose omission issue [Unknown]
  - Inappropriate schedule of product administration [Unknown]
  - Product dose omission in error [Unknown]
  - Confusional state [Unknown]
  - Multiple sclerosis relapse [Recovered/Resolved]
